FAERS Safety Report 26044936 (Version 1)
Quarter: 2025Q4

REPORT INFORMATION
  Report Type: Spontaneous
  Country: RU (occurrence: RU)
  Receive Date: 20251114
  Receipt Date: 20251114
  Transmission Date: 20260118
  Serious: Yes (Other)
  Sender: CHEPLAPHARM
  Company Number: RU-ROCHE-10000427945

PATIENT
  Weight: 85 kg

DRUGS (10)
  1. CAPECITABINE [Suspect]
     Active Substance: CAPECITABINE
     Indication: Adenocarcinoma pancreas
     Dosage: FILM COATED, MAINTENANCE THERAPY WITH CAPECITABINE
     Route: 048
     Dates: start: 202502, end: 202504
  2. GEMCITABINE [Concomitant]
     Active Substance: GEMCITABINE
     Dates: start: 202506
  3. ABRAXANE [Concomitant]
     Active Substance: PACLITAXEL
     Dates: start: 202506
  4. LEUCOVORIN [Suspect]
     Active Substance: LEUCOVORIN\LEUCOVORIN CALCIUM
     Dosage: 12 CYCLES OF FOLFIRINOX CHEMOTHERAPY
     Dates: start: 202408, end: 202501
  5. FLUOROURACIL [Suspect]
     Active Substance: FLUOROURACIL
     Dosage: 12 CYCLES OF FOLFIRINOX CHEMOTHERAPY
     Dates: start: 202408, end: 202501
  6. IRINOTECAN [Suspect]
     Active Substance: IRINOTECAN
     Dosage: 12 CYCLES OF FOLFIRINOX CHEMOTHERAPY
     Dates: start: 202408, end: 202501
  7. OXALIPLATIN [Suspect]
     Active Substance: OXALIPLATIN
     Dosage: 12 CYCLES OF FOLFIRINOX CHEMOTHERAPY
     Dates: start: 202408, end: 202501
  8. DULOXETINE [Concomitant]
     Active Substance: DULOXETINE
  9. ACETAMINOPHEN [Concomitant]
     Active Substance: ACETAMINOPHEN
  10. PREGABALIN [Concomitant]
     Active Substance: PREGABALIN

REACTIONS (5)
  - Metastases to liver [Unknown]
  - Metastases to lung [Unknown]
  - Metastases to abdominal cavity [Unknown]
  - Portal hypertension [Unknown]
  - Acute coronary syndrome [Unknown]
